FAERS Safety Report 15127344 (Version 1)
Quarter: 2018Q3

REPORT INFORMATION
  Report Type: Spontaneous
  Country: US (occurrence: US)
  Receive Date: 20180614
  Receipt Date: 20180614
  Transmission Date: 20181010
  Serious: Yes (Hospitalization, Other)
  Sender: FDA-Public Use
  Company Number: None

PATIENT
  Age: 71 Year
  Sex: Male
  Weight: 100.8 kg

DRUGS (9)
  1. METOPROLOL. [Concomitant]
     Active Substance: METOPROLOL
  2. TAMSULOSIN [Concomitant]
     Active Substance: TAMSULOSIN
  3. ALIVE MULTI IVTMAIN FOR MEN 50+ [Concomitant]
  4. ASPIRIN. [Concomitant]
     Active Substance: ASPIRIN
  5. INVANZ [Suspect]
     Active Substance: ERTAPENEM SODIUM
     Indication: URINARY TRACT INFECTION
     Route: 042
     Dates: start: 20180511, end: 20180526
  6. LISINOPRIL. [Concomitant]
     Active Substance: LISINOPRIL
  7. AMLODIPINE [Concomitant]
     Active Substance: AMLODIPINE BESYLATE
  8. DIGOXIN. [Concomitant]
     Active Substance: DIGOXIN
  9. COCONUT OIL [Concomitant]
     Active Substance: COCONUT OIL

REACTIONS (1)
  - Seizure [None]

NARRATIVE: CASE EVENT DATE: 20180525
